FAERS Safety Report 19013065 (Version 5)
Quarter: 2022Q2

REPORT INFORMATION
  Report Type: Spontaneous
  Country: US (occurrence: US)
  Receive Date: 20210316
  Receipt Date: 20220425
  Transmission Date: 20220720
  Serious: Yes (Hospitalization, Disabling, Other)
  Sender: FDA-Public Use
  Company Number: US-PURDUE-USA-2021-0216620

PATIENT
  Sex: Female

DRUGS (15)
  1. OXYCONTIN [Suspect]
     Active Substance: OXYCODONE HYDROCHLORIDE
     Indication: Product used for unknown indication
     Dosage: UNKNOWN
     Route: 048
  2. HYDROCODONE BITARTRATE [Suspect]
     Active Substance: HYDROCODONE BITARTRATE
     Indication: Product used for unknown indication
     Dosage: (5-10 MG), UNK
     Route: 065
  3. HYDROCODONE BITARTRATE AND ACETAMINOPHEN [Suspect]
     Active Substance: ACETAMINOPHEN\HYDROCODONE BITARTRATE
     Indication: Product used for unknown indication
     Dosage: UNKNOWN
     Route: 048
  4. MORPHINE SULFATE [Suspect]
     Active Substance: MORPHINE SULFATE
     Indication: Product used for unknown indication
     Dosage: 15 MG, UNK
     Route: 048
     Dates: start: 2012, end: 2017
  5. OXYCODONE HYDROCHLORIDE [Suspect]
     Active Substance: OXYCODONE HYDROCHLORIDE
     Indication: Product used for unknown indication
     Dosage: UNKNOWN
     Route: 048
  6. OXYCODONE HYDROCHLORIDE [Suspect]
     Active Substance: OXYCODONE HYDROCHLORIDE
     Indication: Product used for unknown indication
     Dosage: UNKNOWN
     Route: 048
  7. ACETAMINOPHEN\OXYCODONE HYDROCHLORIDE [Suspect]
     Active Substance: ACETAMINOPHEN\OXYCODONE HYDROCHLORIDE
     Indication: Product used for unknown indication
     Dosage: UNKNOWN
     Route: 048
  8. OXYCODONE HYDROCHLORIDE [Suspect]
     Active Substance: OXYCODONE HYDROCHLORIDE
     Indication: Product used for unknown indication
     Dosage: 10 MG, UNK
     Route: 065
     Dates: start: 2006, end: 2017
  9. OXYCODONE HYDROCHLORIDE [Suspect]
     Active Substance: OXYCODONE HYDROCHLORIDE
     Dosage: 10 MG, 2016 OR 2017
     Route: 065
  10. MORPHINE SULFATE [Suspect]
     Active Substance: MORPHINE SULFATE
     Indication: Product used for unknown indication
     Dosage: 2016 OR 2017
     Route: 065
  11. TRAMADOL [Suspect]
     Active Substance: TRAMADOL
     Indication: Product used for unknown indication
     Dosage: UNKNOWN
     Route: 048
  12. XANAX [Suspect]
     Active Substance: ALPRAZOLAM
     Indication: Product used for unknown indication
     Dosage: 2 MG, UNK
     Route: 065
  13. XANAX [Suspect]
     Active Substance: ALPRAZOLAM
     Dosage: 5 MG, UNK
     Route: 065
  14. XANAX [Suspect]
     Active Substance: ALPRAZOLAM
     Dosage: 1 MG, UNK
     Route: 065
  15. XANAX [Suspect]
     Active Substance: ALPRAZOLAM
     Dosage: 2 OR HALF MG, STARTED ON 2003 OR 2007, ENDED ON 2015 OR 2016
     Route: 065

REACTIONS (13)
  - Disability [Not Recovered/Not Resolved]
  - Overdose [Unknown]
  - Cardiac disorder [Unknown]
  - Liver disorder [Unknown]
  - Brain injury [Unknown]
  - Suicidal ideation [Unknown]
  - Drug dependence [Unknown]
  - Loss of personal independence in daily activities [Unknown]
  - Memory impairment [Unknown]
  - Weight increased [Unknown]
  - Hepatic steatosis [Unknown]
  - Obesity [Unknown]
  - Depression [Unknown]

NARRATIVE: CASE EVENT DATE: 20070101
